FAERS Safety Report 22205758 (Version 3)
Quarter: 2023Q2

REPORT INFORMATION
  Report Type: Spontaneous
  Country: US (occurrence: US)
  Receive Date: 20230413
  Receipt Date: 20230510
  Transmission Date: 20230722
  Serious: No
  Sender: FDA-Public Use
  Company Number: US-SANOFI-01568785

PATIENT
  Age: 81 Year
  Sex: Male

DRUGS (1)
  1. LANTUS SOLOSTAR [Suspect]
     Active Substance: INSULIN GLARGINE
     Indication: Diabetes mellitus
     Dosage: 42 IU, QD

REACTIONS (3)
  - Injection site discolouration [Unknown]
  - Injection site vesicles [Unknown]
  - Device operational issue [Unknown]
